FAERS Safety Report 7723932-5 (Version None)
Quarter: 2011Q3

REPORT INFORMATION
  Report Type: 
  Country: None (occurrence: None)
  Receive Date: 20110901
  Receipt Date: 20110818
  Transmission Date: 20111222
  Serious: Yes (Other)
  Sender: FDA-Public Use
  Company Number: US-ELI_LILLY_AND_COMPANY-US201108000797

PATIENT
  Age: 69 Year
  Sex: Female

DRUGS (1)
  1. FORTEO [Suspect]
     Indication: OSTEOPOROSIS
     Dosage: UNK, QD
     Dates: start: 20110401

REACTIONS (7)
  - CHEST DISCOMFORT [None]
  - BONE PAIN [None]
  - GAIT DISTURBANCE [None]
  - SURGERY [None]
  - MALAISE [None]
  - DYSPNOEA [None]
  - PAIN IN EXTREMITY [None]
